FAERS Safety Report 12567087 (Version 2)
Quarter: 2016Q3

REPORT INFORMATION
  Report Type: Spontaneous
  Country: US (occurrence: US)
  Receive Date: 20160718
  Receipt Date: 20160825
  Transmission Date: 20161109
  Serious: Yes (Hospitalization, Other)
  Sender: FDA-Public Use
  Company Number: US-PFIZER INC-2016340540

PATIENT
  Age: 25 Year
  Sex: Female

DRUGS (4)
  1. MELOXCAM [Suspect]
     Active Substance: MELOXICAM
     Indication: PSORIASIS
  2. CELEBREX [Suspect]
     Active Substance: CELECOXIB
     Indication: PSORIASIS
  3. CELEBREX [Suspect]
     Active Substance: CELECOXIB
     Indication: PSORIATIC ARTHROPATHY
     Dosage: UNK
     Dates: start: 1980, end: 1980
  4. MELOXCAM [Suspect]
     Active Substance: MELOXICAM
     Indication: PSORIATIC ARTHROPATHY
     Dosage: UNK
     Dates: start: 1980, end: 1980

REACTIONS (6)
  - Abdominal discomfort [Recovered/Resolved]
  - Pneumonia [Recovered/Resolved]
  - Product use issue [Unknown]
  - Malaise [Recovered/Resolved]
  - Gallbladder pain [Unknown]
  - Gastrointestinal pain [Unknown]

NARRATIVE: CASE EVENT DATE: 1980
